FAERS Safety Report 15146424 (Version 1)
Quarter: 2018Q4

REPORT INFORMATION
  Report Type: Spontaneous
  Country: US (occurrence: US)
  Receive Date: 20180715
  Receipt Date: 20180715
  Transmission Date: 20190204
  Serious: No
  Sender: FDA-Public Use
  Company Number: US-CEDIPROF, INC.-2052049

PATIENT
  Age: 73 Year
  Sex: Female
  Weight: 68.18 kg

DRUGS (1)
  1. LEVO-T [Suspect]
     Active Substance: LEVOTHYROXINE SODIUM
     Dates: start: 20170818, end: 20171009

REACTIONS (2)
  - Constipation [Recovering/Resolving]
  - Hypertension [Recovering/Resolving]
